FAERS Safety Report 9745740 (Version 1)
Quarter: 2013Q4

REPORT INFORMATION
  Report Type: Spontaneous
  Country: FI (occurrence: FI)
  Receive Date: 20131211
  Receipt Date: 20131211
  Transmission Date: 20140711
  Serious: Yes (Other)
  Sender: FDA-Public Use
  Company Number: FI-AMGEN-FINSP2013085697

PATIENT
  Age: 72 Year
  Sex: Male

DRUGS (4)
  1. XGEVA [Suspect]
     Indication: PRODUCT USED FOR UNKNOWN INDICATION
     Dosage: UNK
     Route: 065
     Dates: start: 201308, end: 201309
  2. PANADOL                            /00020001/ [Concomitant]
  3. PANACOD [Concomitant]
  4. ZOMETA [Concomitant]
     Dosage: UNK
     Dates: start: 201006

REACTIONS (1)
  - Osteonecrosis of jaw [Not Recovered/Not Resolved]
